FAERS Safety Report 5798639-4 (Version None)
Quarter: 2008Q3

REPORT INFORMATION
  Report Type: 
  Country: None (occurrence: None)
  Receive Date: 20080702
  Receipt Date: 20080624
  Transmission Date: 20090109
  Serious: Yes (Other)
  Sender: FDA-Public Use
  Company Number: US-WYE-H04698508

PATIENT
  Sex: Female
  Weight: 65.83 kg

DRUGS (6)
  1. PREMARIN [Suspect]
     Indication: HOT FLUSH
     Dosage: NOT PROVIDED
     Route: 048
     Dates: end: 20010101
  2. PREMARIN [Suspect]
     Route: 048
     Dates: start: 20050101
  3. PREMARIN [Suspect]
     Dosage: 1/2 A 0.625MG TABLET DAILY
     Route: 048
  4. AMITRIPTYLINE HCL [Concomitant]
     Dosage: NOT PROVIDED
  5. HYDROCHLOROTHIAZIDE [Concomitant]
     Dosage: NOT PROVIDED
  6. LIPITOR [Concomitant]
     Dosage: 10 MG

REACTIONS (5)
  - BLOOD PRESSURE INCREASED [None]
  - BREAST CANCER [None]
  - CONDITION AGGRAVATED [None]
  - DIARRHOEA [None]
  - FLATULENCE [None]
